FAERS Safety Report 5000160-8 (Version None)
Quarter: 2006Q2

REPORT INFORMATION
  Report Type: 
  Country: None (occurrence: None)
  Receive Date: 20060511
  Receipt Date: 20060508
  Transmission Date: 20061013
  Serious: Yes (Other)
  Sender: FDA-Public Use
  Company Number: DE-BOEHRINGER INGELHEIM PHARMACEUTICALS, INC.-2006-DE-02408GD

PATIENT
  Age: 43 Year
  Sex: Male

DRUGS (3)
  1. NEVIRAPINE [Suspect]
     Indication: HIV INFECTION CDC CATEGORY C3
  2. LAMIVUDINE [Suspect]
     Indication: HIV INFECTION CDC CATEGORY C3
  3. ABACAVIR [Suspect]
     Indication: HIV INFECTION CDC CATEGORY C3

REACTIONS (1)
  - DRUG RESISTANCE [None]
